FAERS Safety Report 25678854 (Version 2)
Quarter: 2025Q3

REPORT INFORMATION
  Report Type: Other
  Country: US (occurrence: US)
  Receive Date: 20250814
  Receipt Date: 20250926
  Transmission Date: 20251021
  Serious: Yes (Other)
  Sender: INTERCEPT PHARMACEUTICALS
  Company Number: US-INTERCEPT-PM2025001664

PATIENT
  Sex: Female
  Weight: 39.002 kg

DRUGS (7)
  1. OCALIVA [Suspect]
     Active Substance: OBETICHOLIC ACID
     Indication: Primary biliary cholangitis
     Dosage: 5 MILLIGRAM, QD
     Route: 048
     Dates: start: 20180406
  2. URSODIOL [Concomitant]
     Active Substance: URSODIOL
  3. GABAPENTIN [Concomitant]
     Active Substance: GABAPENTIN
  4. NORTRIPTYLINE [Concomitant]
     Active Substance: NORTRIPTYLINE
  5. OMEPRAZOLE [Concomitant]
     Active Substance: OMEPRAZOLE
  6. DOXYCYCLINE [Concomitant]
     Active Substance: DOXYCYCLINE
  7. ASPIRIN [Concomitant]
     Active Substance: ASPIRIN

REACTIONS (2)
  - Pulmonary hypertension [Not Recovered/Not Resolved]
  - Eye excision [Recovered/Resolved]

NARRATIVE: CASE EVENT DATE: 20250101
